FAERS Safety Report 9780724 (Version 5)
Quarter: 2016Q2

REPORT INFORMATION
  Report Type: Report from Study
  Country: CZ (occurrence: CZ)
  Receive Date: 20131224
  Receipt Date: 20160527
  Transmission Date: 20160815
  Serious: Yes (Other)
  Sender: FDA-Public Use
  Company Number: CZ-JNJFOC-20131212647

PATIENT
  Age: 32 Year
  Sex: Female
  Weight: 47 kg

DRUGS (6)
  1. VITAMINS (NOS) [Concomitant]
     Active Substance: VITAMINS
     Route: 065
  2. VIGANTOL [Concomitant]
     Dosage: AS NEEDED
     Route: 065
  3. PROBIOTICS [Concomitant]
     Active Substance: PROBIOTICS NOS
     Route: 065
  4. REMICADE [Suspect]
     Active Substance: INFLIXIMAB
     Indication: COLITIS ULCERATIVE
     Route: 042
     Dates: start: 20100602, end: 20110615
  5. CALCIUM/CODEINE [Suspect]
     Active Substance: CALCIUM\CODEINE
     Indication: DIARRHOEA
     Route: 065
  6. CALTRATE [Concomitant]
     Active Substance: CALCIUM CARBONATE
     Dosage: ONE TABLESPOON
     Route: 048

REACTIONS (2)
  - Maternal exposure before pregnancy [Recovered/Resolved]
  - Abortion spontaneous [Recovered/Resolved]

NARRATIVE: CASE EVENT DATE: 20131130
